FAERS Safety Report 14690379 (Version 1)
Quarter: 2018Q1

REPORT INFORMATION
  Report Type: Spontaneous
  Country: US (occurrence: US)
  Receive Date: 20180328
  Receipt Date: 20180328
  Transmission Date: 20180509
  Serious: Yes (Death)
  Sender: FDA-Public Use
  Company Number: PHHY2018US047489

PATIENT
  Age: 71 Year
  Sex: Female

DRUGS (2)
  1. ALPRAZOLAM. [Suspect]
     Active Substance: ALPRAZOLAM
     Indication: PRODUCT USED FOR UNKNOWN INDICATION
     Route: 065
  2. HYDROCODONE [Suspect]
     Active Substance: HYDROCODONE
     Indication: PRODUCT USED FOR UNKNOWN INDICATION
     Route: 065

REACTIONS (7)
  - Bradycardia [Fatal]
  - Depressed level of consciousness [Fatal]
  - Acute kidney injury [Fatal]
  - Hepatotoxicity [Fatal]
  - Hypotension [Fatal]
  - Arrhythmia [Fatal]
  - Respiratory depression [Fatal]
